FAERS Safety Report 17443397 (Version 4)
Quarter: 2020Q2

REPORT INFORMATION
  Report Type: Spontaneous
  Country: BR (occurrence: BR)
  Receive Date: 20200221
  Receipt Date: 20200517
  Transmission Date: 20200713
  Serious: Yes (Hospitalization, Other)
  Sender: FDA-Public Use
  Company Number: BR-BIOGEN-2020BI00840956

PATIENT
  Age: 35 Year
  Sex: Female

DRUGS (2)
  1. CARBAMAZEPINE. [Concomitant]
     Active Substance: CARBAMAZEPINE
     Indication: PRODUCT USED FOR UNKNOWN INDICATION
     Route: 065
  2. TYSABRI [Suspect]
     Active Substance: NATALIZUMAB
     Indication: MULTIPLE SCLEROSIS
     Route: 042
     Dates: start: 20170725

REACTIONS (8)
  - Cerebrospinal fluid circulation disorder [Recovered/Resolved]
  - Fistula [Unknown]
  - Intracranial pressure increased [Not Recovered/Not Resolved]
  - Tinnitus [Unknown]
  - Headache [Recovered/Resolved]
  - Pancreatitis [Unknown]
  - Rhinorrhoea [Unknown]
  - Oroantral fistula [Unknown]

NARRATIVE: CASE EVENT DATE: 202001
